FAERS Safety Report 17324741 (Version 1)
Quarter: 2020Q1

REPORT INFORMATION
  Report Type: Spontaneous
  Country: SE (occurrence: SE)
  Receive Date: 20200127
  Receipt Date: 20200127
  Transmission Date: 20200409
  Serious: Yes (Other)
  Sender: FDA-Public Use
  Company Number: SE-ACCORD-170843

PATIENT
  Age: 59 Year
  Sex: Female
  Weight: 69.5 kg

DRUGS (3)
  1. ARIPIPRAZOLE. [Suspect]
     Active Substance: ARIPIPRAZOLE
     Indication: AGGRESSION
     Dates: start: 2019
  2. OXASCAND [Concomitant]
     Active Substance: OXAZEPAM
     Dosage: 5 MG?
  3. ARIPIPRAZOLE. [Suspect]
     Active Substance: ARIPIPRAZOLE
     Indication: PRODUCT USED FOR UNKNOWN INDICATION
     Dosage: THE DOSE BEFORE THE DOSE INCREASE TO 10 MG.
     Dates: start: 2019

REACTIONS (12)
  - Decreased appetite [Recovering/Resolving]
  - Cyanosis [Recovering/Resolving]
  - Parkinsonism [Recovering/Resolving]
  - Muscle twitching [Recovering/Resolving]
  - Constipation [Recovering/Resolving]
  - Dysphagia [Recovering/Resolving]
  - Tremor [Recovering/Resolving]
  - Asthenia [Recovering/Resolving]
  - Memory impairment [Recovering/Resolving]
  - Musculoskeletal stiffness [Recovering/Resolving]
  - Gait disturbance [Recovering/Resolving]
  - Weight decreased [Recovering/Resolving]

NARRATIVE: CASE EVENT DATE: 2019
